FAERS Safety Report 8822835 (Version 2)
Quarter: 2015Q1

REPORT INFORMATION
  Report Type: Report from Study
  Country: US (occurrence: US)
  Receive Date: 20121003
  Receipt Date: 20150204
  Transmission Date: 20150721
  Serious: Yes (Death, Hospitalization)
  Sender: FDA-Public Use
  Company Number: US-ROCHE-1129984

PATIENT
  Sex: Male
  Weight: 73.55 kg

DRUGS (24)
  1. MICRONASE [Concomitant]
     Active Substance: GLYBURIDE
  2. ADRIAMYCIN [Concomitant]
     Active Substance: DOXORUBICIN HYDROCHLORIDE
     Route: 065
  3. RITUXAN [Suspect]
     Active Substance: RITUXIMAB
     Indication: CHRONIC LYMPHOCYTIC LEUKAEMIA
     Route: 042
     Dates: start: 20000606
  4. LANOLIN. [Concomitant]
     Active Substance: LANOLIN
  5. VANCOMYCIN [Concomitant]
     Active Substance: VANCOMYCIN
  6. SYNTHROID [Concomitant]
     Active Substance: LEVOTHYROXINE SODIUM
     Route: 065
     Dates: start: 200001
  7. AUGMENTIN [Concomitant]
     Active Substance: AMOXICILLIN\CLAVULANATE POTASSIUM
     Route: 048
  8. RITUXAN [Suspect]
     Active Substance: RITUXIMAB
     Route: 042
     Dates: start: 20000613
  9. LASIX [Concomitant]
     Active Substance: FUROSEMIDE
     Route: 048
  10. SYNTHROID [Concomitant]
     Active Substance: LEVOTHYROXINE SODIUM
     Route: 065
  11. VISINE [Concomitant]
     Active Substance: TETRAHYDROZOLINE HYDROCHLORIDE
  12. LEUKERAN [Concomitant]
     Active Substance: CHLORAMBUCIL
     Route: 065
  13. ASPIRIN. [Concomitant]
     Active Substance: ASPIRIN
  14. ANDRODERM [Concomitant]
     Active Substance: TESTOSTERONE
     Route: 065
  15. FLUDARA [Concomitant]
     Active Substance: FLUDARABINE PHOSPHATE
     Route: 065
  16. TYLENOL [Concomitant]
     Active Substance: ACETAMINOPHEN
  17. PREDNISONE. [Concomitant]
     Active Substance: PREDNISONE
  18. DIGITALIS [Concomitant]
     Active Substance: DIGITALIS
  19. NOVANTRONE [Concomitant]
     Active Substance: MITOXANTRONE HYDROCHLORIDE
     Route: 065
  20. EPOGEN [Concomitant]
     Active Substance: ERYTHROPOIETIN
  21. LEUKERAN [Concomitant]
     Active Substance: CHLORAMBUCIL
     Route: 065
  22. OXANDRIN [Concomitant]
     Active Substance: OXANDROLONE
     Route: 065
  23. VASOTEC [Concomitant]
     Active Substance: ENALAPRIL MALEATE
     Route: 065
  24. ANCEF (UNITED STATES) [Concomitant]

REACTIONS (22)
  - Wheezing [Unknown]
  - Ocular hyperaemia [Unknown]
  - Arthralgia [Unknown]
  - Death [Fatal]
  - Spinal disorder [Unknown]
  - Epistaxis [Unknown]
  - Dyspnoea [Unknown]
  - Haemorrhage [Unknown]
  - Lymphadenopathy [Unknown]
  - Blood count abnormal [Unknown]
  - Rhonchi [Unknown]
  - Platelet count decreased [Unknown]
  - Traumatic haemorrhage [Unknown]
  - General physical health deterioration [Unknown]
  - Febrile neutropenia [Recovered/Resolved]
  - Crepitations [Unknown]
  - Asthenia [Unknown]
  - Lethargy [Unknown]
  - Hypotension [Recovered/Resolved]
  - Blood sodium decreased [Unknown]
  - Blood lactate dehydrogenase increased [Unknown]
  - Eye allergy [Unknown]
